FAERS Safety Report 17097829 (Version 1)
Quarter: 2019Q4

REPORT INFORMATION
  Report Type: Spontaneous
  Country: US (occurrence: US)
  Receive Date: 20191105
  Receipt Date: 20191105
  Transmission Date: 20200122
  Serious: Yes (Life-Threatening)
  Sender: FDA-Public Use
  Company Number: None

PATIENT
  Age: 28 Year
  Sex: Female
  Weight: 112.94 kg

DRUGS (2)
  1. DULOXETINE 30MG/60MG [Suspect]
     Active Substance: DULOXETINE
     Indication: DEPRESSION
     Dosage: ?          OTHER FREQUENCY:2 QAM ;?
     Route: 048
  2. DULOXETINE 30MG/60MG [Suspect]
     Active Substance: DULOXETINE
     Indication: ANXIETY
     Route: 048

REACTIONS (1)
  - Suicidal ideation [None]
